FAERS Safety Report 10599940 (Version 1)
Quarter: 2014Q4

REPORT INFORMATION
  Report Type: Spontaneous
  Country: US (occurrence: US)
  Receive Date: 20141121
  Receipt Date: 20141121
  Transmission Date: 20150529
  Serious: No
  Sender: FDA-Public Use
  Company Number: US-SA-2014SA001136

PATIENT
  Age: 54 Year
  Sex: Male

DRUGS (1)
  1. RENAGEL [Suspect]
     Active Substance: SEVELAMER HYDROCHLORIDE
     Indication: HYPERPHOSPHATAEMIA
     Dosage: PRESCRIBED DOSE: 3 TABS TID WITH MEALS BUT SOMETIMES TOOK UP TO 6 TABS WITH A MEAL IF MEAL WAS LARGE
     Route: 065
     Dates: start: 201309

REACTIONS (5)
  - Pruritus [Not Recovered/Not Resolved]
  - Product quality issue [Unknown]
  - Product odour abnormal [Unknown]
  - Product taste abnormal [Unknown]
  - Product colour issue [Unknown]

NARRATIVE: CASE EVENT DATE: 201312
